FAERS Safety Report 10168765 (Version 2)
Quarter: 2014Q2

REPORT INFORMATION
  Report Type: Report from Study
  Country: PL (occurrence: None)
  Receive Date: 20140509
  Receipt Date: 20140623
  Transmission Date: 20141212
  Serious: Yes (Hospitalization, Other)
  Sender: FDA-Public Use
  Company Number: 2014MPI00489

PATIENT
  Age: 19 Year
  Sex: Female
  Weight: 60 kg

DRUGS (4)
  1. BRENTUXIMAB VEDOTIN [Suspect]
     Indication: HODGKIN^S DISEASE
     Route: 042
     Dates: start: 20131202, end: 20140407
  2. DOXORUBICIN [Suspect]
     Indication: HODGKIN^S DISEASE
     Route: 042
     Dates: start: 20131202, end: 20140407
  3. VINBLASTINE (VINBLASTINE SULFATE) INJECTION [Suspect]
     Indication: HODGKIN^S DISEASE
     Route: 042
     Dates: start: 20131202, end: 20140407
  4. DACARBAZINE (DACARBAZINE) INJECTION [Suspect]
     Indication: HODGKIN^S DISEASE
     Route: 042
     Dates: start: 20131202, end: 20140407

REACTIONS (5)
  - Interstitial lung disease [None]
  - Pulmonary fibrosis [None]
  - Cough [None]
  - Asthenia [None]
  - Pneumonia streptococcal [None]
